FAERS Safety Report 25032163 (Version 2)
Quarter: 2025Q1

REPORT INFORMATION
  Report Type: Spontaneous
  Country: GB (occurrence: GB)
  Receive Date: 20250303
  Receipt Date: 20250318
  Transmission Date: 20250408
  Serious: Yes (Hospitalization)
  Sender: MYLAN
  Company Number: GB-MYLANLABS-2025M1016588

PATIENT
  Sex: Male

DRUGS (1)
  1. CLOZARIL [Suspect]
     Active Substance: CLOZAPINE
     Indication: Schizophrenia
     Dates: start: 20221130, end: 20250223

REACTIONS (6)
  - Cellulitis [Unknown]
  - General physical health deterioration [Unknown]
  - Fall [Unknown]
  - Diabetes mellitus [Unknown]
  - Diarrhoea [Unknown]
  - Anaemia [Unknown]
